FAERS Safety Report 7021172-9 (Version None)
Quarter: 2010Q3

REPORT INFORMATION
  Report Type: 
  Country: None (occurrence: None)
  Receive Date: 20100929
  Receipt Date: 20100915
  Transmission Date: 20110219
  Serious: Yes (Hospitalization, Other)
  Sender: FDA-Public Use
  Company Number: PHHY2010US62973

PATIENT
  Age: 70 Year
  Sex: Female
  Weight: 55.782 kg

DRUGS (2)
  1. FIORINAL (ASPIRIN  CAFFEINE  BUTALBITAL) [Suspect]
     Dosage: UNK
  2. EXCEDRIN (MIGRAINE) [Suspect]
     Indication: MIGRAINE
     Route: 048

REACTIONS (3)
  - DRUG DEPENDENCE [None]
  - GASTRIC ULCER [None]
  - REBOUND EFFECT [None]
